FAERS Safety Report 18279217 (Version 1)
Quarter: 2020Q3

REPORT INFORMATION
  Report Type: Spontaneous
  Country: CH (occurrence: CH)
  Receive Date: 20200917
  Receipt Date: 20200917
  Transmission Date: 20201103
  Serious: Yes (Other)
  Sender: FDA-Public Use
  Company Number: CH-TOPROL-202000015

PATIENT
  Sex: Male
  Weight: 2.5 kg

DRUGS (6)
  1. SOTALOL. [Suspect]
     Active Substance: SOTALOL
     Indication: VENTRICULAR TACHYARRHYTHMIA
     Route: 064
  2. BELOC ZOK [Suspect]
     Active Substance: METOPROLOL SUCCINATE
     Indication: VENTRICULAR TACHYARRHYTHMIA
     Dosage: (1?0?1/2)
     Route: 064
     Dates: start: 20200113
  3. SOTALOL. [Suspect]
     Active Substance: SOTALOL
     Indication: VENTRICULAR TACHYARRHYTHMIA
     Route: 064
     Dates: start: 20191127
  4. SOTALOL. [Suspect]
     Active Substance: SOTALOL
     Indication: VENTRICULAR TACHYARRHYTHMIA
     Route: 064
     Dates: end: 20200106
  5. MAGNESIOCARD [Suspect]
     Active Substance: MAGNESIUM ASPARTATE HYDROCHLORIDE
     Indication: PRODUCT USED FOR UNKNOWN INDICATION
  6. DUOFER [ASCORBIC ACID\FERROUS FUMARATE\FERROUS GLUCONATE] [Suspect]
     Active Substance: ASCORBIC ACID\FERROUS FUMARATE\FERROUS GLUCONATE
     Indication: PRODUCT USED FOR UNKNOWN INDICATION

REACTIONS (2)
  - Exposure during pregnancy [Recovered/Resolved]
  - Foetal growth restriction [Recovered/Resolved]

NARRATIVE: CASE EVENT DATE: 201911
